FAERS Safety Report 8589188-9 (Version None)
Quarter: 2012Q3

REPORT INFORMATION
  Report Type: 
  Country: None (occurrence: None)
  Receive Date: 20120813
  Receipt Date: 20120730
  Transmission Date: 20120928
  Serious: No
  Sender: FDA-Public Use
  Company Number: US-JNJFOC-20120801365

PATIENT
  Sex: Female
  Weight: 63.5 kg

DRUGS (7)
  1. FENTANYL-100 [Suspect]
     Route: 062
     Dates: end: 20110101
  2. FENTANYL-100 [Suspect]
     Dosage: ONE 50 UG/HR +  ONE 25 UG/HR PATCH
     Route: 062
     Dates: start: 20110101, end: 20110101
  3. FENTANYL-100 [Suspect]
     Indication: NERVE INJURY
     Dosage: ONE 75 UG/HR
     Route: 062
     Dates: start: 20110101
  4. TOPROL-XL [Concomitant]
     Indication: HYPERTENSION
     Route: 048
  5. FENTANYL-100 [Suspect]
     Indication: NERVE INJURY
     Route: 062
     Dates: end: 20110101
  6. FENTANYL-100 [Suspect]
     Dosage: ONE 75 UG/HR
     Route: 062
     Dates: start: 20110101
  7. FENTANYL-100 [Suspect]
     Dosage: ONE 50 UG/HR +  ONE 25 UG/HR PATCH
     Route: 062
     Dates: start: 20110101, end: 20110101

REACTIONS (3)
  - EXPIRED DRUG ADMINISTERED [None]
  - DRUG DISPENSING ERROR [None]
  - DRUG INEFFECTIVE [None]
